FAERS Safety Report 8002876-8 (Version None)
Quarter: 2011Q4

REPORT INFORMATION
  Report Type: 
  Country: None (occurrence: None)
  Receive Date: 20111222
  Receipt Date: 20110120
  Transmission Date: 20120403
  Serious: No
  Sender: FDA-Public Use
  Company Number: US-GLAXOSMITHKLINE-A0907721A

PATIENT
  Age: 61 Year
  Sex: Male
  Weight: 88.6 kg

DRUGS (2)
  1. PLAVIX [Concomitant]
  2. AVODART [Suspect]
     Indication: BENIGN PROSTATIC HYPERPLASIA
     Dosage: 1CAP PER DAY
     Route: 048
     Dates: start: 20101101, end: 20110101

REACTIONS (3)
  - POLLAKIURIA [None]
  - ERECTILE DYSFUNCTION [None]
  - WEIGHT INCREASED [None]
